FAERS Safety Report 7546235-0 (Version None)
Quarter: 2011Q2

REPORT INFORMATION
  Report Type: 
  Country: None (occurrence: None)
  Receive Date: 20110614
  Receipt Date: 20040217
  Transmission Date: 20111010
  Serious: Yes (Hospitalization)
  Sender: FDA-Public Use
  Company Number: PHFR2004GB01076

PATIENT
  Sex: Female

DRUGS (2)
  1. ANTIEPILEPTICS [Interacting]
     Route: 065
  2. CLOZAPINE [Suspect]
     Indication: SCHIZOPHRENIA
     Route: 048
     Dates: start: 19991130

REACTIONS (1)
  - DRUG INTERACTION [None]
